FAERS Safety Report 8268509-0 (Version None)
Quarter: 2012Q2

REPORT INFORMATION
  Report Type: 
  Country: None (occurrence: None)
  Receive Date: 20120409
  Receipt Date: 20120403
  Transmission Date: 20120825
  Serious: Yes (Hospitalization)
  Sender: FDA-Public Use
  Company Number: US-GLAXOSMITHKLINE-A0913485A

PATIENT
  Age: 62 Year
  Sex: Male

DRUGS (11)
  1. CLONIDINE [Concomitant]
  2. AVANDIA [Suspect]
     Indication: DIABETES MELLITUS
     Dosage: 8MG PER DAY
     Route: 048
     Dates: start: 20030101, end: 20060101
  3. AVANDAMET [Suspect]
     Indication: DIABETES MELLITUS
     Route: 048
     Dates: start: 20030101, end: 20040101
  4. AMARYL [Concomitant]
  5. VYTORIN [Concomitant]
  6. TOPROL-XL [Concomitant]
  7. AVANDARYL [Suspect]
     Indication: DIABETES MELLITUS
     Dosage: 2TAB PER DAY
     Route: 048
     Dates: start: 20060101, end: 20080101
  8. LANTUS [Concomitant]
  9. PREVACID [Concomitant]
  10. TARKA [Concomitant]
  11. MICARDIS [Concomitant]

REACTIONS (3)
  - CARDIAC FAILURE CONGESTIVE [None]
  - CORONARY ARTERY DISEASE [None]
  - MYOCARDIAL INFARCTION [None]
